FAERS Safety Report 18784790 (Version 1)
Quarter: 2021Q1

REPORT INFORMATION
  Report Type: Spontaneous
  Country: US (occurrence: US)
  Receive Date: 20210126
  Receipt Date: 20210126
  Transmission Date: 20210419
  Serious: No
  Sender: FDA-Public Use
  Company Number: US-HISAMITSU PHARMACEUTICAL CO., INC.-2020US006927

PATIENT
  Age: 46 Year
  Sex: Female

DRUGS (1)
  1. SECUADO [Suspect]
     Active Substance: ASENAPINE
     Indication: SCHIZOAFFECTIVE DISORDER
     Dosage: 3.8 MG/ 24 HOUR
     Route: 062
     Dates: start: 202010

REACTIONS (1)
  - Muscle spasms [Not Recovered/Not Resolved]

NARRATIVE: CASE EVENT DATE: 202010
